FAERS Safety Report 23069663 (Version 2)
Quarter: 2023Q4

REPORT INFORMATION
  Report Type: Report from Study
  Country: US (occurrence: US)
  Receive Date: 20231016
  Receipt Date: 20231027
  Transmission Date: 20240110
  Serious: Yes (Hospitalization, Other)
  Sender: FDA-Public Use
  Company Number: US-ALNYLAM PHARMACEUTICALS, INC.-ALN-2023-005400

PATIENT

DRUGS (1)
  1. AMVUTTRA [Suspect]
     Active Substance: VUTRISIRAN
     Indication: Hereditary neuropathic amyloidosis
     Dosage: UNK
     Route: 065
     Dates: start: 20230804

REACTIONS (5)
  - Ill-defined disorder [Unknown]
  - Surgery [Unknown]
  - Dialysis [Unknown]
  - Therapy interrupted [Unknown]
  - Syncope [Unknown]

NARRATIVE: CASE EVENT DATE: 20231020
